FAERS Safety Report 11058528 (Version 1)
Quarter: 2015Q2

REPORT INFORMATION
  Report Type: Spontaneous
  Country: FR (occurrence: None)
  Receive Date: 20150421
  Receipt Date: 20150421
  Transmission Date: 20150821
  Serious: Yes (Life-Threatening, Hospitalization)
  Sender: FDA-Public Use
  Company Number: 2015COV00081

PATIENT
  Age: 25 Year
  Sex: Female

DRUGS (1)
  1. HYDROXYCHLOROQUINE [Suspect]
     Active Substance: HYDROXYCHLOROQUINE
     Route: 048

REACTIONS (5)
  - Toxicity to various agents [None]
  - Suicide attempt [None]
  - Circulatory collapse [None]
  - Multi-organ failure [None]
  - Intentional overdose [None]
